FAERS Safety Report 6598845-5 (Version None)
Quarter: 2010Q1

REPORT INFORMATION
  Report Type: 
  Country: None (occurrence: None)
  Receive Date: 20100217
  Receipt Date: 20100202
  Transmission Date: 20100710
  Serious: Yes (Other)
  Sender: FDA-Public Use
  Company Number: 1000011660

PATIENT
  Age: 28 Year
  Sex: Female

DRUGS (1)
  1. CITALOPRAM HYDROBROMIDE [Suspect]
     Dosage: (10 MG,ONCE),ORAL
     Route: 048

REACTIONS (3)
  - AGITATION [None]
  - FEELING ABNORMAL [None]
  - SYNCOPE [None]
